FAERS Safety Report 8077315-1 (Version None)
Quarter: 2012Q1

REPORT INFORMATION
  Report Type: 
  Country: None (occurrence: None)
  Receive Date: 20120127
  Receipt Date: 20120124
  Transmission Date: 20120608
  Serious: Yes (Death, Other)
  Sender: FDA-Public Use
  Company Number: PHHY2011US37849

PATIENT
  Sex: Female

DRUGS (3)
  1. SANDOSTATIN LAR [Suspect]
     Dosage: UNK UKN, UNK
  2. SANDOSTATIN LAR [Suspect]
     Dosage: 30 MG, TWICE MONTHLY
  3. SANDOSTATIN LAR [Suspect]
     Indication: CARCINOID SYNDROME
     Dosage: 30 MG, EVERY 28 DAYS

REACTIONS (2)
  - NEOPLASM MALIGNANT [None]
  - DEATH [None]
